FAERS Safety Report 25891402 (Version 2)
Quarter: 2025Q4

REPORT INFORMATION
  Report Type: Spontaneous
  Country: JP (occurrence: JP)
  Receive Date: 20251007
  Receipt Date: 20251105
  Transmission Date: 20260117
  Serious: Yes (Other)
  Sender: ELI LILLY AND COMPANY
  Company Number: JP-ELI_LILLY_AND_COMPANY-JP202510005006

PATIENT
  Age: 58 Year
  Sex: Male
  Weight: 105 kg

DRUGS (12)
  1. MOUNJARO [Suspect]
     Active Substance: TIRZEPATIDE
     Indication: Diabetes mellitus
     Dosage: 2.5 MG
     Route: 065
     Dates: start: 20250906, end: 20250907
  2. MOUNJARO [Suspect]
     Active Substance: TIRZEPATIDE
     Indication: Diabetes mellitus
     Dosage: 2.5 MG
     Route: 065
     Dates: start: 20250906, end: 20250907
  3. MOUNJARO [Suspect]
     Active Substance: TIRZEPATIDE
     Indication: Diabetes mellitus
     Dosage: 2.5 MG
     Route: 065
     Dates: start: 20250906, end: 20250907
  4. MOUNJARO [Suspect]
     Active Substance: TIRZEPATIDE
     Indication: Diabetes mellitus
     Dosage: 2.5 MG
     Route: 065
     Dates: start: 20250906, end: 20250907
  5. FEBUXOSTAT [Concomitant]
     Active Substance: FEBUXOSTAT
     Indication: Hyperuricaemia
     Dosage: 20 MG
     Route: 048
  6. IRTRA HD [Concomitant]
     Indication: Hypertension
     Dosage: UNK
     Route: 048
  7. GASTER [Concomitant]
     Active Substance: FAMOTIDINE
     Dosage: 10 MG
     Route: 048
  8. ADALAT CC [Concomitant]
     Active Substance: NIFEDIPINE
     Dosage: 40 MG
     Route: 065
  9. PEMAFIBRATE [Concomitant]
     Active Substance: PEMAFIBRATE
     Dosage: UNK
     Route: 065
     Dates: start: 20241019
  10. TU-100 [Concomitant]
     Active Substance: ASIAN GINSENG\GINGER\ZANTHOXYLUM PIPERITUM FRUIT PULP
     Dosage: UNK
     Route: 048
     Dates: start: 20250913
  11. MOSAPRIDE CITRATE [Concomitant]
     Active Substance: MOSAPRIDE CITRATE
  12. PRIMPERAN [Concomitant]
     Active Substance: METOCLOPRAMIDE HYDROCHLORIDE
     Dosage: UNK
     Dates: start: 20250913

REACTIONS (1)
  - Ileus paralytic [Unknown]

NARRATIVE: CASE EVENT DATE: 20250907
